FAERS Safety Report 10452697 (Version 1)
Quarter: 2014Q3

REPORT INFORMATION
  Report Type: Spontaneous
  Country: US (occurrence: None)
  Receive Date: 20140911
  Receipt Date: 20140911
  Transmission Date: 20150326
  Serious: Yes (Other)
  Sender: FDA-Public Use
  Company Number: ABR_01802_2014

PATIENT
  Age: 17 Year
  Sex: Female

DRUGS (1)
  1. LISDEXAMFETAMINE [Suspect]
     Active Substance: LISDEXAMFETAMINE
     Indication: PRODUCT USED FOR UNKNOWN INDICATION
     Dosage: [NOT THE PRESCRIBED DOSE]

REACTIONS (12)
  - Drug screen positive [None]
  - Chest pain [None]
  - Hypertension [None]
  - Nausea [None]
  - Mydriasis [None]
  - Vision blurred [None]
  - Tremor [None]
  - Urine amphetamine positive [None]
  - Toxicity to various agents [None]
  - Intentional overdose [None]
  - Headache [None]
  - Vomiting [None]
